FAERS Safety Report 5568253-4 (Version None)
Quarter: 2007Q4

REPORT INFORMATION
  Report Type: 
  Country: None (occurrence: None)
  Receive Date: 20071220
  Receipt Date: 20071211
  Transmission Date: 20080405
  Serious: Yes (Hospitalization)
  Sender: FDA-Public Use
  Company Number: US-WYE-H01674107

PATIENT
  Age: 69 Year
  Sex: Male
  Weight: 200 kg

DRUGS (12)
  1. TEMSIROLIMUS [Suspect]
     Indication: MULTIPLE MYELOMA
     Dosage: 15 MG ON DAYS 1, 8, 22 AND 29 AND THEN EVERY 35 DAYS
     Route: 042
     Dates: start: 20070612, end: 20071204
  2. ATORVASTATIN [Concomitant]
     Route: 048
  3. HEPARIN-FRACTION, SODIUM SALT [Concomitant]
     Dosage: DOSE UNKNOWN FREQUENCY ^DAILY^
     Route: 058
  4. OXYCODONE HCL [Concomitant]
  5. VALACYCLOVIR HCL [Concomitant]
     Route: 048
  6. PREDNISONE [Concomitant]
     Route: 048
  7. ONDANSETRON HYDROCHLORIDE [Concomitant]
     Indication: NAUSEA
     Route: 048
  8. ONDANSETRON HYDROCHLORIDE [Concomitant]
     Indication: VOMITING
  9. METOPROLOL TARTRATE [Concomitant]
     Route: 048
  10. ZOLPIDEM TARTRATE [Concomitant]
     Dosage: AT BEDTIME
     Route: 048
  11. VELCADE [Suspect]
     Dosage: 1.3 MG/M2 WEEKLY
     Route: 042
     Dates: start: 20070612, end: 20071204
  12. ACETAMINOPHEN [Concomitant]
     Route: 048

REACTIONS (8)
  - DECREASED APPETITE [None]
  - FLUID INTAKE REDUCED [None]
  - LOWER RESPIRATORY TRACT INFECTION [None]
  - MALAISE [None]
  - NAUSEA [None]
  - PNEUMONIA [None]
  - PYREXIA [None]
  - VOMITING [None]
